FAERS Safety Report 4854447-X (Version None)
Quarter: 2005Q4

REPORT INFORMATION
  Report Type: 
  Country: None (occurrence: None)
  Receive Date: 20051214
  Receipt Date: 20051214
  Transmission Date: 20060501
  Serious: Yes (Hospitalization)
  Sender: FDA-Public Use
  Company Number: None

PATIENT
  Sex: Male
  Weight: 96.4 kg

DRUGS (1)
  1. SIMVASTATIN [Suspect]
     Indication: HYPERLIPIDAEMIA
     Dosage: 80 MG DAILY PO
     Route: 048
     Dates: start: 20021118, end: 20051003

REACTIONS (3)
  - BLOOD POTASSIUM DECREASED [None]
  - DEHYDRATION [None]
  - RHABDOMYOLYSIS [None]
